FAERS Safety Report 10983453 (Version 1)
Quarter: 2015Q2

REPORT INFORMATION
  Report Type: Spontaneous
  Country: US (occurrence: None)
  Receive Date: 20150402
  Receipt Date: 20150402
  Transmission Date: 20150821
  Serious: No
  Sender: FDA-Public Use
  Company Number: None

PATIENT
  Age: 61 Year
  Sex: Male
  Weight: 96 kg

DRUGS (3)
  1. ALBUTEROL HFA (VENTOLIN HFA) [Concomitant]
  2. IBRUTINIB [Suspect]
     Active Substance: IBRUTINIB
     Indication: CHRONIC LYMPHOCYTIC LEUKAEMIA
     Dosage: 3 PILLS
     Route: 048
     Dates: start: 20131201, end: 20141202
  3. AMB HOME OXYGEN [Concomitant]

REACTIONS (13)
  - Platelet count decreased [None]
  - Lymphadenopathy [None]
  - Hyperhidrosis [None]
  - Abdominal distension [None]
  - Cough [None]
  - Blood immunoglobulin G decreased [None]
  - Neutrophil count decreased [None]
  - Decreased appetite [None]
  - Dyspnoea [None]
  - Impaired work ability [None]
  - White blood cell count increased [None]
  - Feeding disorder [None]
  - Blood lactate dehydrogenase increased [None]

NARRATIVE: CASE EVENT DATE: 20141202
